FAERS Safety Report 8644194 (Version 6)
Quarter: 2014Q2

REPORT INFORMATION
  Report Type: Report from Study
  Country: JP (occurrence: JP)
  Receive Date: 20120629
  Receipt Date: 20140519
  Transmission Date: 20141212
  Serious: Yes (Other)
  Sender: FDA-Public Use
  Company Number: JP-VERTEX PHARMACEUTICAL INC.-AE-2012-009272

PATIENT
  Age: 61 Year
  Sex: Male

DRUGS (11)
  1. VX-950 (TELAPREVIR) [Suspect]
     Indication: CHRONIC HEPATITIS C
     Dosage: 1500 MG, QD
     Route: 048
     Dates: start: 20120509, end: 20120801
  2. PEGINTERFERON ALFA-2B [Suspect]
     Indication: CHRONIC HEPATITIS C
     Dosage: 1.5 ?G/KG, QW
     Route: 058
     Dates: start: 20120509, end: 20120620
  3. PEGINTERFERON ALFA-2B [Suspect]
     Dosage: 60 ?G, QW
     Route: 058
     Dates: start: 20120621, end: 20120726
  4. RIBAVIRIN [Suspect]
     Indication: CHRONIC HEPATITIS C
     Dosage: 800 MG, QD
     Route: 048
     Dates: start: 20120509, end: 20120604
  5. RIBAVIRIN [Suspect]
     Dosage: 600 MG, QD
     Route: 048
     Dates: start: 20120605, end: 20120801
  6. RIBAVIRIN [Suspect]
     Dosage: 200 MG, QD
     Route: 048
     Dates: start: 20120802, end: 20120807
  7. ALESION [Concomitant]
     Dosage: 20 MG, QD
     Route: 048
     Dates: start: 20120501
  8. GASTER [Concomitant]
     Dosage: 20 MG, QD
     Route: 048
     Dates: start: 20120501
  9. CALONAL [Concomitant]
     Dosage: 600 MG, PER DAY/PRN
     Route: 048
     Dates: start: 20120509
  10. CALONAL [Concomitant]
     Dosage: 600 MG, QD
     Route: 048
  11. MAGMITT [Concomitant]
     Dosage: 990 MG, PER DAY/PRN
     Route: 048
     Dates: start: 20120628, end: 20120809

REACTIONS (2)
  - Retinopathy [Recovered/Resolved]
  - Haemoglobin decreased [Recovered/Resolved]
